FAERS Safety Report 21285219 (Version 1)
Quarter: 2022Q3

REPORT INFORMATION
  Report Type: Other
  Country: RO (occurrence: None)
  Receive Date: 20220902
  Receipt Date: 20220902
  Transmission Date: 20221027
  Serious: Yes (Other)
  Sender: FDA-Public Use
  Company Number: RO-ROCHE-3168773

PATIENT
  Sex: Female
  Weight: 65 kg

DRUGS (1)
  1. TOCILIZUMAB [Suspect]
     Active Substance: TOCILIZUMAB
     Indication: Rheumatoid arthritis
     Dosage: 162MG/0.9ML?SUBCUTANEOUSLY, IN THE LEG
     Route: 058

REACTIONS (7)
  - Headache [Unknown]
  - Neoplasm [Unknown]
  - Depressed level of consciousness [Unknown]
  - Pulmonary tuberculosis [Unknown]
  - Drug-induced liver injury [Unknown]
  - Stress [Unknown]
  - Amnesia [Unknown]
